FAERS Safety Report 8492250-2 (Version None)
Quarter: 2012Q2

REPORT INFORMATION
  Report Type: 
  Country: None (occurrence: None)
  Receive Date: 20120625
  Receipt Date: 20120614
  Transmission Date: 20120825
  Serious: Yes (Other)
  Sender: FDA-Public Use
  Company Number: 2012032666

PATIENT
  Age: 65 Year
  Sex: Female

DRUGS (1)
  1. BERINERT [Suspect]
     Indication: HEREDITARY ANGIOEDEMA
     Dosage: BERINERT P GIVES IN 2008 TO FEBRUARY 2010; 1000 IU PER ATTACK

REACTIONS (2)
  - HEREDITARY ANGIOEDEMA [None]
  - CONDITION AGGRAVATED [None]
